FAERS Safety Report 13504149 (Version 1)
Quarter: 2017Q2

REPORT INFORMATION
  Report Type: Spontaneous
  Country: AU (occurrence: AU)
  Receive Date: 20170502
  Receipt Date: 20170502
  Transmission Date: 20170830
  Serious: Yes (Hospitalization)
  Sender: FDA-Public Use
  Company Number: AU-LANNETT COMPANY, INC.-AU-2017LAN000730

PATIENT

DRUGS (4)
  1. HALOPERIDOL LACTATE. [Suspect]
     Active Substance: HALOPERIDOL LACTATE
     Indication: PSYCHOTIC DISORDER
     Dosage: 10 MG, UNK
     Route: 065
  2. RISPERIDONE. [Suspect]
     Active Substance: RISPERIDONE
     Indication: PSYCHOTIC DISORDER
     Dosage: 1 MG, BID
     Route: 048
  3. CLONAZEPAM. [Concomitant]
     Active Substance: CLONAZEPAM
     Indication: PSYCHOTIC DISORDER
     Dosage: 2 MG, UNK
  4. CHLORPROMAZINE. [Suspect]
     Active Substance: CHLORPROMAZINE
     Indication: PSYCHOTIC DISORDER
     Dosage: 100 MG, UNK
     Route: 065

REACTIONS (2)
  - Spasmodic dysphonia [Recovered/Resolved]
  - Drug interaction [Recovered/Resolved]
